FAERS Safety Report 19026246 (Version 2)
Quarter: 2021Q2

REPORT INFORMATION
  Report Type: Spontaneous
  Country: US (occurrence: US)
  Receive Date: 20210318
  Receipt Date: 20210629
  Transmission Date: 20210717
  Serious: No
  Sender: FDA-Public Use
  Company Number: US-PFIZER INC-2021235251

PATIENT
  Age: 41 Year
  Sex: Male
  Weight: 145.15 kg

DRUGS (2)
  1. INLYTA [Suspect]
     Active Substance: AXITINIB
     Indication: RENAL CELL CARCINOMA STAGE IV
     Dosage: 5 MG, 2X/DAY
     Route: 048
     Dates: start: 20210226
  2. INLYTA [Suspect]
     Active Substance: AXITINIB
     Dosage: UNK, 2X/DAY (AT THE END OF MAR2021 (3 INLYTA 1MG TABLETS, TWICE A DAY))
     Route: 048

REACTIONS (8)
  - Dysphonia [Not Recovered/Not Resolved]
  - Vomiting [Recovered/Resolved]
  - Neoplasm progression [Unknown]
  - COVID-19 [Unknown]
  - Aphonia [Recovered/Resolved]
  - Nausea [Not Recovered/Not Resolved]
  - Blood bilirubin increased [Recovered/Resolved]
  - Decreased appetite [Not Recovered/Not Resolved]

NARRATIVE: CASE EVENT DATE: 202103
